FAERS Safety Report 18019280 (Version 1)
Quarter: 2020Q3

REPORT INFORMATION
  Report Type: Spontaneous
  Country: US (occurrence: US)
  Receive Date: 20200714
  Receipt Date: 20200714
  Transmission Date: 20201103
  Serious: Yes (Life-Threatening, Hospitalization)
  Sender: FDA-Public Use
  Company Number: None

PATIENT
  Age: 46 Year
  Sex: Female
  Weight: 66 kg

DRUGS (2)
  1. IBUPROFEN (IBUPROFEN 600MG TAB) [Suspect]
     Active Substance: IBUPROFEN
     Indication: BIPOLAR I DISORDER
     Route: 048
     Dates: start: 20200220, end: 20200228
  2. LITHIUM (LITHIUM CARBONATE 300MG TAB, SA) [Suspect]
     Active Substance: LITHIUM CARBONATE
     Indication: PAIN
     Route: 048
     Dates: start: 20190916, end: 20200301

REACTIONS (4)
  - Toxicity to various agents [None]
  - Drug interaction [None]
  - Antipsychotic drug level increased [None]
  - Dizziness [None]

NARRATIVE: CASE EVENT DATE: 20200228
